FAERS Safety Report 7418219-4 (Version None)
Quarter: 2011Q2

REPORT INFORMATION
  Report Type: 
  Country: None (occurrence: None)
  Receive Date: 20110415
  Receipt Date: 20110408
  Transmission Date: 20111010
  Serious: Yes (Hospitalization, Disabling, Other)
  Sender: FDA-Public Use
  Company Number: PT-GILEAD-2011-0036683

PATIENT
  Sex: Male
  Weight: 40 kg

DRUGS (7)
  1. PREGABALIN [Concomitant]
     Indication: NEUROPATHY PERIPHERAL
     Route: 048
     Dates: start: 20100224, end: 20110216
  2. KALETRA [Concomitant]
     Indication: HIV INFECTION
     Dates: start: 20041103, end: 20110216
  3. VIDEX [Suspect]
     Indication: HIV INFECTION
     Route: 048
     Dates: start: 20041103, end: 20110216
  4. PARACETAMOL [Concomitant]
     Indication: PAIN
     Route: 048
  5. VIREAD [Suspect]
     Indication: HIV INFECTION
     Route: 048
     Dates: start: 20041103, end: 20110216
  6. SITAGLIPTIN [Concomitant]
     Indication: TYPE 2 DIABETES MELLITUS
     Route: 048
     Dates: start: 20100224, end: 20110216
  7. PARACETAMOL [Concomitant]
     Indication: PYREXIA

REACTIONS (4)
  - MITOCHONDRIAL TOXICITY [None]
  - ARTHRALGIA [None]
  - FANCONI SYNDROME ACQUIRED [None]
  - OSTEOPOROSIS [None]
